FAERS Safety Report 16736777 (Version 2)
Quarter: 2019Q4

REPORT INFORMATION
  Report Type: Spontaneous
  Country: DE (occurrence: DE)
  Receive Date: 20190823
  Receipt Date: 20191218
  Transmission Date: 20200122
  Serious: Yes (Hospitalization, Other)
  Sender: FDA-Public Use
  Company Number: DE-JNJFOC-20190824546

PATIENT
  Age: 76 Year
  Sex: Male
  Weight: 117 kg

DRUGS (14)
  1. ACETYLSALICYLIC ACID [Suspect]
     Active Substance: ASPIRIN
     Indication: PRODUCT USED FOR UNKNOWN INDICATION
     Dosage: UNK
     Dates: start: 201909
  2. PREGABALIN RATIOPHARM [Concomitant]
     Active Substance: PREGABALIN
     Dosage: 25 MG, BID
     Route: 048
  3. FEBUXOSTAT. [Concomitant]
     Active Substance: FEBUXOSTAT
     Dosage: 80 MG, QD
     Route: 048
  4. SPIRONOLACTON AL [Concomitant]
     Dosage: 50 MG, QD
     Route: 048
  5. DIGIMERCK PICO [Concomitant]
     Dosage: 0.05 MG, QD
     Route: 048
  6. METOPROLOL SUCCINATE. [Concomitant]
     Active Substance: METOPROLOL SUCCINATE
     Dosage: 95 MG, BID
     Route: 048
  7. FERRO-SANOL DUODENAL [Concomitant]
     Active Substance: FERROUS GLYCINE SULFATE
     Dosage: 100 MG, QD
     Route: 048
  8. TORASEMID AL [Concomitant]
     Active Substance: TORSEMIDE
     Dosage: 20 MG, BID
  9. FOLIC ACID. [Concomitant]
     Active Substance: FOLIC ACID
     Dosage: 5 MG, QD
     Route: 048
  10. XARELTO [Suspect]
     Active Substance: RIVAROXABAN
     Indication: ATRIAL FIBRILLATION
     Dosage: 20 MG, ONCE
     Route: 048
     Dates: start: 201906, end: 201906
  11. ATORVASTATIN PUREN [Concomitant]
     Dosage: 10 MG, QD
     Route: 048
  12. TILIDIN COMP [Concomitant]
     Active Substance: NALOXONE HYDROCHLORIDE\TILIDINE HYDROCHLORIDE
     Indication: SKIN ULCER
     Dosage: 50MG/4MG 2-0-1-0
     Route: 048
  13. MACROGOL [Concomitant]
     Active Substance: POLYETHYLENE GLYCOLS
     Dosage: UNK UNK, PRN 1-0-0-0
  14. ELIQUIS [Concomitant]
     Active Substance: APIXABAN
     Dosage: 5 MG, BID

REACTIONS (5)
  - Drug ineffective [Unknown]
  - Epistaxis [Unknown]
  - Skin ulcer haemorrhage [Unknown]
  - Infected skin ulcer [Unknown]
  - Transient ischaemic attack [Recovered/Resolved with Sequelae]

NARRATIVE: CASE EVENT DATE: 2019
